FAERS Safety Report 19528862 (Version 5)
Quarter: 2021Q3

REPORT INFORMATION
  Report Type: Report from Study
  Country: PE (occurrence: PE)
  Receive Date: 20210713
  Receipt Date: 20210908
  Transmission Date: 20211014
  Serious: Yes (Hospitalization, Other)
  Sender: FDA-Public Use
  Company Number: PE-SA-2021SA054019

PATIENT
  Age: 40 Year
  Sex: Male

DRUGS (5)
  1. BACLOFEN. [Suspect]
     Active Substance: BACLOFEN
     Dosage: 10 MG
     Route: 065
     Dates: start: 20210524
  2. ALEMTUZUMAB [Suspect]
     Active Substance: ALEMTUZUMAB
     Indication: MULTIPLE SCLEROSIS
     Dosage: 96 MG, TOTAL (TWICE)
     Route: 042
     Dates: end: 20171007
  3. OCRELIZUMAB. [Concomitant]
     Active Substance: OCRELIZUMAB
     Indication: MULTIPLE SCLEROSIS
     Dosage: 300 MG
     Dates: start: 20210727, end: 20210727
  4. ALEMTUZUMAB [Suspect]
     Active Substance: ALEMTUZUMAB
     Dosage: 96 MG, TOTAL (TWICE)
     Route: 042
     Dates: start: 20161020
  5. OCRELIZUMAB. [Concomitant]
     Active Substance: OCRELIZUMAB
     Dosage: 300 MG
     Dates: start: 20210814, end: 20210814

REACTIONS (25)
  - Mydriasis [Unknown]
  - Balance disorder [Unknown]
  - Anxiety [Unknown]
  - Pain [Unknown]
  - Dizziness [Recovered/Resolved]
  - Optic neuritis [Recovering/Resolving]
  - Therapeutic response shortened [Unknown]
  - Blood triglycerides increased [Recovering/Resolving]
  - Nasal congestion [Recovered/Resolved]
  - Discomfort [Unknown]
  - Vision blurred [Recovering/Resolving]
  - Dry eye [Unknown]
  - Muscle spasticity [Recovered/Resolved]
  - Gait disturbance [Unknown]
  - Musculoskeletal stiffness [Unknown]
  - Tinnitus [Unknown]
  - Blood cholesterol increased [Unknown]
  - Pruritus [Unknown]
  - Influenza [Recovered/Resolved]
  - Multiple sclerosis relapse [Unknown]
  - Dysgraphia [Unknown]
  - Muscle rigidity [Unknown]
  - Bone lesion [Unknown]
  - Inappropriate schedule of product administration [Unknown]
  - Limb discomfort [Unknown]

NARRATIVE: CASE EVENT DATE: 20210124
